FAERS Safety Report 7901206 (Version 2)
Quarter: 2013Q3

REPORT INFORMATION
  Report Type: Spontaneous
  Country: GR (occurrence: GR)
  Receive Date: 20110415
  Receipt Date: 20130717
  Transmission Date: 20140515
  Serious: Yes (Other)
  Sender: FDA-Public Use
  Company Number: PHHY2011GR28643

PATIENT
  Age: 67 Year
  Sex: Female

DRUGS (3)
  1. METFORMIN [Suspect]
     Indication: DIABETES MELLITUS
     Dosage: 850 MG, TID
  2. RAMIPRIL [Concomitant]
     Dosage: 5 MG, BID
  3. TERAZOSIN [Concomitant]
     Dosage: 2.5 MG, BID

REACTIONS (10)
  - Hypophosphataemia [Recovered/Resolved]
  - Infection [Recovered/Resolved]
  - Asthenia [Recovered/Resolved]
  - Platelet count decreased [Recovered/Resolved]
  - Fatigue [Recovered/Resolved]
  - Drug prescribing error [Unknown]
  - Rectal tenesmus [Recovered/Resolved]
  - Decreased appetite [Recovered/Resolved]
  - Diarrhoea [Recovered/Resolved]
  - White blood cell count decreased [Recovered/Resolved]
